FAERS Safety Report 7051141-4 (Version None)
Quarter: 2010Q4

REPORT INFORMATION
  Report Type: 
  Country: None (occurrence: None)
  Receive Date: 20101012
  Receipt Date: 20101001
  Transmission Date: 20110411
  Serious: No
  Sender: FDA-Public Use
  Company Number: CRC-10-175

PATIENT
  Age: 55 Year
  Sex: Female

DRUGS (1)
  1. MIDRIN CAPSULES [Suspect]
     Indication: MIGRAINE

REACTIONS (1)
  - NO THERAPEUTIC RESPONSE [None]
